FAERS Safety Report 10445803 (Version 2)
Quarter: 2014Q3

REPORT INFORMATION
  Report Type: Spontaneous
  Country: BR (occurrence: BR)
  Receive Date: 20140910
  Receipt Date: 20140912
  Transmission Date: 20150326
  Serious: Yes (Other)
  Sender: FDA-Public Use
  Company Number: BR-PFIZER INC-2014247406

PATIENT
  Age: 89 Year
  Sex: Male
  Weight: 60 kg

DRUGS (8)
  1. XALATAN [Suspect]
     Active Substance: LATANOPROST
     Dosage: 3 UG, 1 DROP IN EACH EYE, 1X/DAY
     Route: 047
     Dates: start: 2006, end: 201409
  2. PARIET [Concomitant]
     Active Substance: RABEPRAZOLE SODIUM
     Indication: GASTRIC DISORDER
     Dosage: 1 TABLET DAILY
     Dates: start: 2008
  3. DOXAZOSIN [Concomitant]
     Active Substance: DOXAZOSIN\DOXAZOSIN MESYLATE
     Indication: PROSTATIC DISORDER
     Dosage: 1 TABLET DAILY
     Dates: start: 2008
  4. GINKGO BILOBA [Concomitant]
     Active Substance: GINKGO
     Indication: PERIPHERAL VASCULAR DISORDER
     Dosage: 1 TABLET DAILY
     Dates: start: 2006
  5. SOMALGIN CARDIO [Concomitant]
     Active Substance: ASPIRIN\DIHYDROXYALUMINUM AMINOACETATE ANHYDROUS\MAGNESIUM CARBONATE
     Indication: CARDIAC DISORDER
     Dosage: 1 TABLET DAILY
     Dates: start: 2008
  6. NEBILET [Concomitant]
     Active Substance: NEBIVOLOL
     Indication: CARDIAC DISORDER
     Dosage: 1 TABLET, DAILY
     Dates: start: 2013
  7. GINKGO BILOBA [Concomitant]
     Active Substance: GINKGO
     Indication: MEMORY IMPAIRMENT
  8. LIPITOR [Concomitant]
     Active Substance: ATORVASTATIN CALCIUM
     Indication: BLOOD CHOLESTEROL ABNORMAL
     Dosage: 1 TABLET, DAILY
     Dates: start: 2010

REACTIONS (2)
  - Cardiac disorder [Unknown]
  - Drug ineffective [Unknown]
